FAERS Safety Report 24690252 (Version 1)
Quarter: 2024Q4

REPORT INFORMATION
  Report Type: Spontaneous
  Country: US (occurrence: US)
  Receive Date: 20241203
  Receipt Date: 20241203
  Transmission Date: 20250115
  Serious: No
  Sender: SANOFI AVENTIS
  Company Number: US-SA-2024SA353401

PATIENT
  Age: 61 Year
  Sex: Female
  Weight: 52.27 kg

DRUGS (8)
  1. DUPIXENT [Suspect]
     Active Substance: DUPILUMAB
     Indication: Dermatitis atopic
     Dosage: 300 MG, QOW
     Route: 058
  2. GAS-X [Concomitant]
     Active Substance: DIMETHICONE
  3. TUMS [Concomitant]
     Active Substance: CALCIUM CARBONATE
  4. PROBIOTICS NOS [Concomitant]
     Active Substance: PROBIOTICS NOS
  5. EUCRISA [Concomitant]
     Active Substance: CRISABOROLE
  6. OXCARBAZEPINE [Concomitant]
     Active Substance: OXCARBAZEPINE
  7. COLESEVELAM HYDROCHLORIDE [Concomitant]
     Active Substance: COLESEVELAM HYDROCHLORIDE
  8. CHLORDIAZEPOXIDE;CLIDINIUM [Concomitant]

REACTIONS (4)
  - Eye disorder [Unknown]
  - Injection site pain [Unknown]
  - Eczema [Unknown]
  - Inappropriate schedule of product administration [Unknown]

NARRATIVE: CASE EVENT DATE: 20240101
